FAERS Safety Report 11090512 (Version 1)
Quarter: 2015Q2

REPORT INFORMATION
  Report Type: Spontaneous
  Country: US (occurrence: None)
  Receive Date: 20150504
  Receipt Date: 20150504
  Transmission Date: 20150821
  Serious: Yes (Other)
  Sender: FDA-Public Use
  Company Number: None

PATIENT
  Age: 65 Year
  Sex: Female
  Weight: 109.32 kg

DRUGS (16)
  1. CYMBALTA [Concomitant]
     Active Substance: DULOXETINE HYDROCHLORIDE
  2. LIPITOR [Concomitant]
     Active Substance: ATORVASTATIN CALCIUM
  3. CPAP [Concomitant]
     Active Substance: DEVICE
  4. METFORMIN [Concomitant]
     Active Substance: METFORMIN HYDROCHLORIDE
  5. BABY ASPIRIN [Concomitant]
     Active Substance: ASPIRIN
  6. LAMOTIGINE [Concomitant]
  7. B6 [Concomitant]
     Active Substance: PYRIDOXINE HYDROCHLORIDE
  8. BITE SPLINT [Concomitant]
  9. MILK THISTLE [Concomitant]
     Active Substance: MILK THISTLE
  10. OSTEOBIFLEX [Concomitant]
  11. ZYRTEC [Concomitant]
     Active Substance: CETIRIZINE HYDROCHLORIDE
  12. COQ10 [Concomitant]
     Active Substance: UBIDECARENONE
  13. DIFLUCAN [Concomitant]
     Active Substance: FLUCONAZOLE
  14. FLUCONAZOLE 150MG [Suspect]
     Active Substance: FLUCONAZOLE
     Indication: FUNGAL INFECTION
     Dosage: ONE PER WEEK FOR 3 WEEKS
     Route: 048
     Dates: start: 20150428, end: 20150428
  15. QUETIAPINE 25MG [Suspect]
     Active Substance: QUETIAPINE
     Indication: SLEEP DISORDER THERAPY
     Route: 048
     Dates: start: 20150428, end: 20150428
  16. FLUCONAZOLE. [Concomitant]
     Active Substance: FLUCONAZOLE

REACTIONS (8)
  - Impaired work ability [None]
  - Somnolence [None]
  - Gait disturbance [None]
  - Vision blurred [None]
  - Paranoia [None]
  - Feeling abnormal [None]
  - Abnormal behaviour [None]
  - Drug interaction [None]

NARRATIVE: CASE EVENT DATE: 20150429
